FAERS Safety Report 9333996 (Version 1)
Quarter: 2013Q2

REPORT INFORMATION
  Report Type: Spontaneous
  Country: GB (occurrence: None)
  Receive Date: 20130604
  Receipt Date: 20130604
  Transmission Date: 20140414
  Serious: Yes (Other)
  Sender: FDA-Public Use
  Company Number: AUR-APL-2013-04603

PATIENT
  Sex: Male

DRUGS (1)
  1. FLUOXETINE (FLUOXETINE) [Suspect]
     Indication: DEPRESSION

REACTIONS (8)
  - Nightmare [None]
  - Agitation [None]
  - Depression [None]
  - Anxiety [None]
  - Aggression [None]
  - Pruritus generalised [None]
  - Restlessness [None]
  - Condition aggravated [None]
